FAERS Safety Report 7016260-7 (Version None)
Quarter: 2010Q3

REPORT INFORMATION
  Report Type: 
  Country: None (occurrence: None)
  Receive Date: 20100927
  Receipt Date: 20100915
  Transmission Date: 20110219
  Serious: Yes (Other)
  Sender: FDA-Public Use
  Company Number: AU-AMGEN-KDC428893

PATIENT
  Sex: Male

DRUGS (24)
  1. PANITUMUMAB [Suspect]
     Indication: GASTROOESOPHAGEAL CANCER
     Route: 042
     Dates: start: 20100413
  2. DOCETAXEL [Suspect]
     Route: 042
     Dates: start: 20100413
  3. CISPLATIN [Suspect]
     Route: 042
     Dates: start: 20100413
  4. FLUOROPYRIMIDINE [Suspect]
     Route: 042
     Dates: start: 20100413
  5. VITAMIN E [Concomitant]
     Route: 048
     Dates: start: 20100301
  6. MULTIVIT [Concomitant]
     Route: 048
     Dates: start: 20100301
  7. COENZYME Q10 [Concomitant]
     Route: 048
     Dates: start: 20100301
  8. SELENIUM [Concomitant]
     Route: 048
     Dates: start: 20100301
  9. ECHINACEA EXTRACT [Concomitant]
     Route: 048
     Dates: start: 20100301, end: 20100421
  10. ZINC [Concomitant]
     Route: 048
     Dates: start: 20100301, end: 20100421
  11. NEXIUM [Concomitant]
     Route: 048
     Dates: start: 20100324
  12. ASCORBIC ACID [Concomitant]
     Route: 048
     Dates: start: 20100301
  13. DEXAMETHASONE [Concomitant]
     Dates: start: 20100413
  14. LOVAZA [Concomitant]
     Route: 048
     Dates: start: 20100301
  15. TROPISETRON [Concomitant]
     Route: 042
     Dates: start: 20100414, end: 20100416
  16. EMEND [Concomitant]
     Route: 048
     Dates: start: 20100414, end: 20100505
  17. DILTIAZEM [Concomitant]
     Route: 048
     Dates: start: 20100416, end: 20100510
  18. ASPIRIN [Concomitant]
     Route: 048
     Dates: start: 20100416
  19. DIGOXIN [Concomitant]
     Dates: start: 20100416
  20. METOPROLOL TARTRATE [Concomitant]
     Route: 048
     Dates: start: 20100416
  21. MAGNESIUM [Concomitant]
     Route: 042
     Dates: start: 20100416, end: 20100416
  22. FLUDROCORTISONE [Concomitant]
     Route: 048
     Dates: start: 20100422
  23. ISORDIL [Concomitant]
     Route: 048
     Dates: start: 20100422, end: 20100422
  24. SYNACTHEN [Concomitant]
     Route: 042
     Dates: start: 20100423, end: 20100423

REACTIONS (2)
  - DIARRHOEA [None]
  - MOUTH ULCERATION [None]
